FAERS Safety Report 24225449 (Version 1)
Quarter: 2024Q3

REPORT INFORMATION
  Report Type: Spontaneous
  Country: US (occurrence: US)
  Receive Date: 20240820
  Receipt Date: 20240820
  Transmission Date: 20241016
  Serious: No
  Sender: CHATTEM
  Company Number: US-OPELLA-2024OHG027166

PATIENT

DRUGS (1)
  1. SELSUN BLUE MEDICATED [Suspect]
     Active Substance: SELENIUM SULFIDE
     Indication: Product used for unknown indication

REACTIONS (4)
  - Hair texture abnormal [Unknown]
  - Product odour abnormal [Unknown]
  - Product adhesion issue [Unknown]
  - Drug ineffective [Unknown]
